FAERS Safety Report 5208211-2 (Version None)
Quarter: 2007Q1

REPORT INFORMATION
  Report Type: 
  Country: None (occurrence: None)
  Receive Date: 20070115
  Receipt Date: 20070105
  Transmission Date: 20070707
  Serious: Yes (Hospitalization)
  Sender: FDA-Public Use
  Company Number: NO-GLAXOSMITHKLINE-B0453883A

PATIENT
  Age: 66 Year
  Sex: Male

DRUGS (7)
  1. CEFUROXIME SODIUM [Suspect]
     Indication: ANTIBIOTIC PROPHYLAXIS
     Route: 065
     Dates: start: 20060101, end: 20060101
  2. PRIMIDONE [Suspect]
     Indication: TREMOR
     Route: 065
     Dates: end: 20060501
  3. ENBREL [Suspect]
     Dosage: 25MG PER DAY
     Route: 051
     Dates: start: 20010501, end: 20060313
  4. LIPITOR [Suspect]
     Indication: BLOOD CHOLESTEROL INCREASED
     Dosage: 40MG PER DAY
     Route: 048
     Dates: end: 20060501
  5. PREDNISOLONE [Concomitant]
     Dosage: 5MG PER DAY
  6. ALBYL-E [Concomitant]
     Dosage: 160MG PER DAY
  7. DOXYLIN [Concomitant]

REACTIONS (7)
  - ALVEOLITIS [None]
  - HEPATIC ENZYME INCREASED [None]
  - LUNG INFILTRATION [None]
  - NEOPLASM [None]
  - PNEUMONIA [None]
  - PULMONARY FIBROSIS [None]
  - RESPIRATORY TRACT INFECTION [None]
